FAERS Safety Report 4775271-2 (Version None)
Quarter: 2005Q3

REPORT INFORMATION
  Report Type: 
  Country: None (occurrence: None)
  Receive Date: 20050921
  Receipt Date: 20050921
  Transmission Date: 20060218
  Serious: Yes (Hospitalization)
  Sender: FDA-Public Use
  Company Number: None

PATIENT
  Age: 64 Year
  Sex: Female
  Weight: 65.7716 kg

DRUGS (6)
  1. PACLITAXEL [Suspect]
     Indication: NON-SMALL CELL LUNG CANCER
     Dosage: 80 MG WEEKLY IV X 6 WEEKS
     Route: 042
     Dates: start: 20050809
  2. CARBOPLATIN [Suspect]
     Indication: NON-SMALL CELL LUNG CANCER
     Dosage: 190 MG IV WEEKLY X 6
     Route: 042
     Dates: start: 20050809
  3. VELCADE [Suspect]
     Indication: NON-SMALL CELL LUNG CANCER
     Dosage: 0.8 MG IV TWICE /WK #1, #2, #5
     Route: 042
     Dates: start: 20050809
  4. ZOLOFT [Concomitant]
  5. TRANXENE [Concomitant]
  6. NICORETTE [Concomitant]

REACTIONS (3)
  - ASTHENIA [None]
  - FEBRILE NEUTROPENIA [None]
  - INFECTION [None]
